FAERS Safety Report 5010228-8 (Version None)
Quarter: 2006Q2

REPORT INFORMATION
  Report Type: 
  Country: None (occurrence: None)
  Receive Date: 20060404
  Receipt Date: 20051214
  Transmission Date: 20061013
  Serious: No
  Sender: FDA-Public Use
  Company Number: US200512002511

PATIENT
  Sex: Female

DRUGS (5)
  1. CYMBALTA [Suspect]
     Indication: DEPRESSION
     Dosage: 30 MG;  30 MG
     Dates: start: 20051201, end: 20051201
  2. CYMBALTA [Suspect]
     Indication: DEPRESSION
     Dosage: 30 MG;  30 MG
     Dates: start: 20050301
  3. CYMBALTA [Suspect]
  4. PANLOR DC (CAFFEINE, DIHYDROCODEINE BITARTRATE, PARACETAMOL) [Concomitant]
  5. CORGARD [Concomitant]

REACTIONS (1)
  - TONGUE ERUPTION [None]
